FAERS Safety Report 7638463-0 (Version None)
Quarter: 2011Q3

REPORT INFORMATION
  Report Type: 
  Country: None (occurrence: None)
  Receive Date: 20110726
  Receipt Date: 20110726
  Transmission Date: 20111222
  Serious: Yes (Hospitalization)
  Sender: FDA-Public Use
  Company Number: None

PATIENT
  Sex: Female
  Weight: 68.1 kg

DRUGS (9)
  1. VELCADE [Suspect]
     Indication: DIFFUSE LARGE B-CELL LYMPHOMA
     Dosage: 1.6MG/M2, WEEKLY, IV
     Route: 042
     Dates: start: 20110616
  2. VELCADE [Suspect]
     Indication: DIFFUSE LARGE B-CELL LYMPHOMA
     Dosage: 1.6MG/M2, WEEKLY, IV
     Route: 042
     Dates: start: 20110623
  3. VELCADE [Suspect]
     Indication: DIFFUSE LARGE B-CELL LYMPHOMA
     Dosage: 1.6MG/M2, WEEKLY, IV
     Route: 042
     Dates: start: 20110707
  4. ACYCLOVIR [Concomitant]
  5. PROPHYLAXIS [Concomitant]
  6. TEMSIROLIMUS [Suspect]
     Indication: DIFFUSE LARGE B-CELL LYMPHOMA
     Dosage: 25MG, WEEKLY, IV
     Route: 042
     Dates: start: 20110623
  7. TEMSIROLIMUS [Suspect]
     Indication: DIFFUSE LARGE B-CELL LYMPHOMA
     Dosage: 25MG, WEEKLY, IV
     Route: 042
     Dates: start: 20110707
  8. TEMSIROLIMUS [Suspect]
     Indication: DIFFUSE LARGE B-CELL LYMPHOMA
     Dosage: 25MG, WEEKLY, IV
     Route: 042
     Dates: start: 20110616
  9. CIPROFLOXACIN [Concomitant]

REACTIONS (2)
  - SEPSIS [None]
  - PERFORMANCE STATUS DECREASED [None]
